FAERS Safety Report 14182072 (Version 1)
Quarter: 2017Q4

REPORT INFORMATION
  Report Type: Report from Study
  Country: CA (occurrence: CA)
  Receive Date: 20171113
  Receipt Date: 20171113
  Transmission Date: 20180321
  Serious: No
  Sender: FDA-Public Use
  Company Number: CA-THERATECHNOLOGIES, INC.-TH-2017-00343

PATIENT

DRUGS (1)
  1. EGRIFTA [Suspect]
     Active Substance: TESAMORELIN
     Indication: HIV INFECTION
     Dosage: 1 MG MILLIGRAM(S), BID

REACTIONS (1)
  - Drug ineffective [Unknown]
